FAERS Safety Report 20981393 (Version 4)
Quarter: 2022Q3

REPORT INFORMATION
  Report Type: Spontaneous
  Country: DE (occurrence: DE)
  Receive Date: 20220620
  Receipt Date: 20220929
  Transmission Date: 20221026
  Serious: Yes (Hospitalization, Other)
  Sender: FDA-Public Use
  Company Number: DE-NOVARTISPH-NVSC2022DE106442

PATIENT
  Age: 64 Year
  Sex: Female
  Weight: 86 kg

DRUGS (4)
  1. DOCETAXEL [Suspect]
     Active Substance: DOCETAXEL
     Indication: Lung adenocarcinoma
     Dosage: FORM OF ADMIN: LIQUID
     Route: 042
     Dates: start: 20220315
  2. NINTEDANIB [Suspect]
     Active Substance: NINTEDANIB
     Indication: Lung adenocarcinoma
     Dosage: 200 MG, Q12H
     Route: 048
     Dates: start: 20220316
  3. NINTEDANIB [Suspect]
     Active Substance: NINTEDANIB
     Dosage: UNK (REDUCED DOSE)
     Route: 065
  4. PANTOPRAZOLE [Concomitant]
     Active Substance: PANTOPRAZOLE
     Indication: Product used for unknown indication
     Dosage: 40 MG, QD
     Route: 048

REACTIONS (6)
  - Nausea [Recovered/Resolved]
  - Diarrhoea [Recovered/Resolved]
  - Acute coronary syndrome [Recovered/Resolved]
  - Dyspnoea [Not Recovered/Not Resolved]
  - Urinary tract infection [Not Recovered/Not Resolved]
  - Diarrhoea [Recovered/Resolved]

NARRATIVE: CASE EVENT DATE: 20220331
